FAERS Safety Report 15363183 (Version 1)
Quarter: 2018Q3

REPORT INFORMATION
  Report Type: Spontaneous
  Country: US (occurrence: US)
  Receive Date: 20180907
  Receipt Date: 20180907
  Transmission Date: 20181010
  Serious: No
  Sender: FDA-Public Use
  Company Number: US-009507513-1808USA009362

PATIENT
  Age: 5 Year
  Sex: Female

DRUGS (7)
  1. CLARINEX [Suspect]
     Active Substance: DESLORATADINE
     Indication: TONSILLAR HYPERTROPHY
  2. CLARINEX [Suspect]
     Active Substance: DESLORATADINE
     Indication: TRACHEOMALACIA
  3. CLARINEX [Suspect]
     Active Substance: DESLORATADINE
     Indication: OCULAR HYPERAEMIA
  4. CLARINEX [Suspect]
     Active Substance: DESLORATADINE
     Indication: UPPER-AIRWAY COUGH SYNDROME
  5. CLARINEX [Suspect]
     Active Substance: DESLORATADINE
     Indication: LARYNGEAL CLEFT
     Dosage: 1 DF, QD
     Route: 048
     Dates: end: 2018
  6. CLARINEX [Suspect]
     Active Substance: DESLORATADINE
     Indication: RESPIRATION ABNORMAL
  7. CLARINEX [Suspect]
     Active Substance: DESLORATADINE
     Indication: ADENOIDAL DISORDER

REACTIONS (4)
  - Ocular hyperaemia [Not Recovered/Not Resolved]
  - Upper-airway cough syndrome [Not Recovered/Not Resolved]
  - Product use in unapproved indication [Unknown]
  - Drug dose omission [Unknown]

NARRATIVE: CASE EVENT DATE: 2018
